FAERS Safety Report 8000235-5 (Version None)
Quarter: 2011Q4

REPORT INFORMATION
  Report Type: 
  Country: None (occurrence: None)
  Receive Date: 20111220
  Receipt Date: 20111220
  Transmission Date: 20120403
  Serious: Yes (Other)
  Sender: FDA-Public Use
  Company Number: None

PATIENT
  Age: 63 Year
  Sex: Female

DRUGS (1)
  1. SODIUM FLUORIDE + POTASSIUM NITRATE TOOTHPASTE (SODIUM FLUORIDE + POTA [Suspect]
     Indication: SENSITIVITY OF TEETH
     Dosage: / / DENTAL
     Route: 004

REACTIONS (1)
  - HELICOBACTER GASTRITIS [None]
